FAERS Safety Report 7568663-X (Version None)
Quarter: 2011Q2

REPORT INFORMATION
  Report Type: 
  Country: None (occurrence: None)
  Receive Date: 20110623
  Receipt Date: 20110615
  Transmission Date: 20111010
  Serious: Yes (Hospitalization, Other)
  Sender: FDA-Public Use
  Company Number: US-BRISTOL-MYERS SQUIBB COMPANY-15579154

PATIENT
  Age: 56 Year
  Sex: Female

DRUGS (4)
  1. LOPERAMIDE [Concomitant]
  2. HYDROCHLOROTHIAZIDE [Concomitant]
  3. IPILIMUMAB [Suspect]
     Indication: MALIGNANT MELANOMA
     Route: 042
     Dates: start: 20101221, end: 20110222
  4. LEVOTHYROXINE SODIUM [Concomitant]

REACTIONS (3)
  - SYNCOPE [None]
  - VISUAL ACUITY REDUCED [None]
  - PAPILLOEDEMA [None]
